FAERS Safety Report 7675431-7 (Version None)
Quarter: 2011Q3

REPORT INFORMATION
  Report Type: 
  Country: None (occurrence: None)
  Receive Date: 20110810
  Receipt Date: 20110803
  Transmission Date: 20111222
  Serious: Yes (Death, Life-Threatening, Hospitalization)
  Sender: FDA-Public Use
  Company Number: JP-PFIZER INC-2011049392

PATIENT
  Age: 79 Year
  Sex: Male
  Weight: 56 kg

DRUGS (9)
  1. AMIODARONE HCL [Suspect]
     Indication: ACUTE MYOCARDIAL INFARCTION
  2. AMIODARONE HCL [Suspect]
     Indication: ATRIAL FIBRILLATION
     Dosage: 200 MG, 1X/DAY
     Route: 048
     Dates: start: 20090623, end: 20110201
  3. ALDACTONE [Concomitant]
     Dosage: UNK
  4. MAGNESIUM SULFATE [Concomitant]
     Dosage: UNK
     Dates: end: 20110418
  5. CARVEDILOL [Concomitant]
     Dosage: UNK
     Dates: end: 20110305
  6. AMIODARONE HCL [Suspect]
     Indication: CORONARY ARTERY BYPASS
  7. LASIX [Concomitant]
     Dosage: UNK
  8. SENNOSIDE A [Concomitant]
     Dosage: UNK
     Dates: end: 20110418
  9. NOVORAPID [Concomitant]
     Dosage: UNK
     Route: 058

REACTIONS (1)
  - LIVER DISORDER [None]
